FAERS Safety Report 6675112-2 (Version None)
Quarter: 2010Q2

REPORT INFORMATION
  Report Type: 
  Country: None (occurrence: None)
  Receive Date: 20100409
  Receipt Date: 20100331
  Transmission Date: 20101027
  Serious: Yes (Death)
  Sender: FDA-Public Use
  Company Number: ES-ABBOTT-09P-144-0595524-00

PATIENT
  Sex: Male

DRUGS (1)
  1. KALETRA [Suspect]
     Indication: LIPODYSTROPHY ACQUIRED
     Dosage: 800/200 (400/100)
     Route: 048

REACTIONS (1)
  - SUDDEN DEATH [None]
